FAERS Safety Report 8569819-X (Version None)
Quarter: 2012Q3

REPORT INFORMATION
  Report Type: 
  Country: None (occurrence: None)
  Receive Date: 20120803
  Receipt Date: 20120702
  Transmission Date: 20120928
  Serious: No
  Sender: FDA-Public Use
  Company Number: US-ABBOTT-12P-163-0952018-00

PATIENT
  Sex: Male
  Weight: 105.78 kg

DRUGS (7)
  1. EXFORGE [Concomitant]
     Indication: PRODUCT USED FOR UNKNOWN INDICATION
  2. CRESTOR [Concomitant]
     Indication: PRODUCT USED FOR UNKNOWN INDICATION
  3. ALLOPURINOL [Concomitant]
     Indication: PRODUCT USED FOR UNKNOWN INDICATION
  4. NIASPAN [Suspect]
     Indication: HIGH DENSITY LIPOPROTEIN DECREASED
  5. UNKNOWN PARKINSON DISEASE MEDICATION [Concomitant]
     Indication: PARKINSON'S DISEASE
  6. BAYER ASA [Concomitant]
     Indication: PRODUCT USED FOR UNKNOWN INDICATION
  7. METOPROLOL TARTRATE [Concomitant]
     Indication: BLOOD PRESSURE

REACTIONS (9)
  - PAIN IN EXTREMITY [None]
  - SKIN DISORDER [None]
  - WOUND SECRETION [None]
  - BLISTER [None]
  - PRURITUS [None]
  - SKIN EXFOLIATION [None]
  - SKIN WOUND [None]
  - DRY SKIN [None]
  - GOUT [None]
